FAERS Safety Report 9419794 (Version 2)
Quarter: 2013Q3

REPORT INFORMATION
  Report Type: Spontaneous
  Country: US (occurrence: US)
  Receive Date: 20130725
  Receipt Date: 20130725
  Transmission Date: 20140515
  Serious: No
  Sender: FDA-Public Use
  Company Number: US-009507513-1306USA009759

PATIENT
  Sex: Female

DRUGS (1)
  1. COPPERTONE ULTRAGUARD CONTINUOUS SPRAY SPF 70+ [Suspect]
     Indication: PRODUCT USED FOR UNKNOWN INDICATION
     Dosage: UNK, UNKNOWN
     Route: 061

REACTIONS (2)
  - Intercepted medication error [Unknown]
  - Product quality issue [Unknown]
